FAERS Safety Report 4658501-7 (Version None)
Quarter: 2005Q2

REPORT INFORMATION
  Report Type: 
  Country: None (occurrence: None)
  Receive Date: 20050510
  Receipt Date: 20050510
  Transmission Date: 20051028
  Serious: Yes (Hospitalization)
  Sender: FDA-Public Use
  Company Number: None

PATIENT
  Age: 50 Year
  Sex: Male
  Weight: 89.8122 kg

DRUGS (1)
  1. IBUPROFEN [Suspect]
     Indication: PAIN MANAGEMENT
     Dosage: 200MG  Q6H    ORAL
     Route: 048
     Dates: start: 20040910, end: 20040916

REACTIONS (4)
  - HAEMATEMESIS [None]
  - HAEMATOCRIT DECREASED [None]
  - SELF-MEDICATION [None]
  - TREATMENT NONCOMPLIANCE [None]
